FAERS Safety Report 18534081 (Version 1)
Quarter: 2020Q4

REPORT INFORMATION
  Report Type: Spontaneous
  Country: US (occurrence: US)
  Receive Date: 20201123
  Receipt Date: 20201123
  Transmission Date: 20210114
  Serious: Yes (Death, Other)
  Sender: FDA-Public Use
  Company Number: None

PATIENT
  Age: 93 Year
  Sex: Male
  Weight: 66.7 kg

DRUGS (18)
  1. ASCORBIC ACID. [Concomitant]
     Active Substance: ASCORBIC ACID
     Dates: start: 20201111
  2. CEFTRIAXONE. [Concomitant]
     Active Substance: CEFTRIAXONE
     Dates: start: 20201113, end: 20201115
  3. METOPROLOL. [Concomitant]
     Active Substance: METOPROLOL
     Dates: start: 20201110, end: 20201112
  4. REMDESIVIR. [Suspect]
     Active Substance: REMDESIVIR
     Indication: COVID-19
     Route: 042
     Dates: start: 20201111, end: 20201114
  5. HEPARIN [Concomitant]
     Active Substance: HEPARIN SODIUM
     Dates: start: 20201110, end: 20201116
  6. PRAVASTATIN. [Concomitant]
     Active Substance: PRAVASTATIN
     Dates: start: 20201110, end: 20201112
  7. ASPIRIN. [Concomitant]
     Active Substance: ASPIRIN
     Dates: start: 20201111, end: 20201112
  8. AZITHROMYCIN ANHYDROUS. [Concomitant]
     Active Substance: AZITHROMYCIN ANHYDROUS
     Dates: start: 20201113, end: 20201116
  9. DEXMETATOMIDINE [Concomitant]
     Dates: start: 20201113, end: 20201116
  10. MORPHINE [Concomitant]
     Active Substance: MORPHINE
     Dates: start: 20201113, end: 20201116
  11. METHYLPREDNISOLONE. [Concomitant]
     Active Substance: METHYLPREDNISOLONE
     Dates: start: 20201110, end: 20201116
  12. AMIODARONE [Concomitant]
     Active Substance: AMIODARONE
     Dates: start: 20201113, end: 20201113
  13. GABAPENTIN. [Concomitant]
     Active Substance: GABAPENTIN
     Dates: start: 20201110, end: 20201112
  14. ALFUSOSIN [Concomitant]
     Active Substance: ALFUZOSIN
     Dates: start: 20201111, end: 20201112
  15. ALBUTEROL. [Concomitant]
     Active Substance: ALBUTEROL
     Dates: start: 20201111, end: 20201113
  16. AMLODIPINE [Concomitant]
     Active Substance: AMLODIPINE BESYLATE
     Dates: start: 20201111, end: 20201112
  17. FUROSEMIDE. [Concomitant]
     Active Substance: FUROSEMIDE
     Dates: start: 20201110, end: 20201112
  18. NORCO [Concomitant]
     Active Substance: ACETAMINOPHEN\HYDROCODONE BITARTRATE
     Dates: start: 20201110, end: 20201113

REACTIONS (1)
  - Acute kidney injury [None]

NARRATIVE: CASE EVENT DATE: 20201114
